FAERS Safety Report 6504478-9 (Version None)
Quarter: 2009Q4

REPORT INFORMATION
  Report Type: 
  Country: None (occurrence: None)
  Receive Date: 20091215
  Receipt Date: 20091204
  Transmission Date: 20100525
  Serious: Yes (Hospitalization, Other)
  Sender: FDA-Public Use
  Company Number: 2009AC000360

PATIENT
  Age: 79 Year
  Sex: Male

DRUGS (7)
  1. DIGOXIN [Suspect]
     Dosage: 0.125 MG;QD; PO
     Route: 048
     Dates: start: 20050301
  2. TENORMIN [Concomitant]
  3. CORDARONE [Concomitant]
  4. LISINOPRIL [Concomitant]
  5. ATENOLOL [Concomitant]
  6. ASPIRIN [Concomitant]
  7. AMIODARONE HCL [Concomitant]

REACTIONS (14)
  - ATRIAL FIBRILLATION [None]
  - BLOOD PRESSURE INCREASED [None]
  - CARDIOMYOPATHY [None]
  - CEREBRAL HAEMORRHAGE [None]
  - CONTUSION [None]
  - ECONOMIC PROBLEM [None]
  - FALL [None]
  - FEMUR FRACTURE [None]
  - HAEMORRHAGE INTRACRANIAL [None]
  - HYPERTENSION [None]
  - RIB FRACTURE [None]
  - SINUS BRADYCARDIA [None]
  - SUBDURAL HAEMATOMA [None]
  - VERTIGO [None]
